FAERS Safety Report 6889365-9 (Version None)
Quarter: 2010Q3

REPORT INFORMATION
  Report Type: 
  Country: None (occurrence: None)
  Receive Date: 20100730
  Receipt Date: 20080207
  Transmission Date: 20110219
  Serious: No
  Sender: FDA-Public Use
  Company Number: US-PFIZER INC-2007105050

PATIENT
  Sex: Female
  Weight: 119.5 kg

DRUGS (15)
  1. LIPITOR [Suspect]
     Dates: start: 20071211
  2. CALCITRIOL [Concomitant]
  3. PREVACID [Concomitant]
  4. DOXAZOSIN [Concomitant]
  5. ALLEGRA [Concomitant]
  6. ZETIA [Concomitant]
  7. AMLODIPINE BESYLATE [Concomitant]
  8. MONTELUKAST SODIUM [Concomitant]
  9. FUROSEMIDE [Concomitant]
  10. OMEPRAZOLE [Concomitant]
  11. DRUG, UNSPECIFIED [Concomitant]
  12. LISINOPRIL [Concomitant]
  13. AVAPRO [Concomitant]
  14. VITAMIN B6 [Concomitant]
  15. INSULIN [Concomitant]

REACTIONS (3)
  - FATIGUE [None]
  - FEELING ABNORMAL [None]
  - MALAISE [None]
